FAERS Safety Report 13694546 (Version 9)
Quarter: 2017Q3

REPORT INFORMATION
  Report Type: Spontaneous
  Country: US (occurrence: US)
  Receive Date: 20170627
  Receipt Date: 20170809
  Transmission Date: 20171127
  Serious: Yes (Hospitalization)
  Sender: FDA-Public Use
  Company Number: US-GLAXOSMITHKLINE-US2017GSK098542

PATIENT
  Age: 51 Year
  Sex: Female

DRUGS (5)
  1. FLOLAN [Suspect]
     Active Substance: EPOPROSTENOL SODIUM
     Indication: PULMONARY ARTERIAL HYPERTENSION
     Dosage: 11 DF, CO
     Route: 042
     Dates: start: 20170620
  2. FLOLAN [Suspect]
     Active Substance: EPOPROSTENOL SODIUM
     Dosage: 13 DF, CO
     Route: 042
     Dates: start: 20170706
  3. FLOLAN [Suspect]
     Active Substance: EPOPROSTENOL SODIUM
     Indication: PULMONARY ARTERIAL HYPERTENSION
     Dosage: UNK
     Dates: start: 20170620
  4. FLOLAN [Suspect]
     Active Substance: EPOPROSTENOL SODIUM
     Dosage: 11 DF, CO
     Route: 042
  5. FLOLAN [Suspect]
     Active Substance: EPOPROSTENOL SODIUM
     Dosage: UNK

REACTIONS (18)
  - Crying [Unknown]
  - Pulmonary pain [Unknown]
  - Malaise [Unknown]
  - Ill-defined disorder [Unknown]
  - Headache [Unknown]
  - Intentional product use issue [Unknown]
  - Pain in jaw [Unknown]
  - Abdominal pain [Unknown]
  - Diarrhoea [Not Recovered/Not Resolved]
  - Chest pain [Unknown]
  - Gastrointestinal infection [Unknown]
  - Vomiting [Not Recovered/Not Resolved]
  - Nausea [Not Recovered/Not Resolved]
  - Jaundice [Unknown]
  - Abdominal pain upper [Unknown]
  - Productive cough [Unknown]
  - Oxygen saturation decreased [Unknown]
  - Insomnia [Unknown]

NARRATIVE: CASE EVENT DATE: 201706
